FAERS Safety Report 15913194 (Version 4)
Quarter: 2019Q2

REPORT INFORMATION
  Report Type: Not Available
  Country: US (occurrence: US)
  Receive Date: 20190204
  Receipt Date: 20190415
  Transmission Date: 20190711
  Serious: Yes (Hospitalization)
  Sender: FDA-Public Use
  Company Number: US-NEUROCRINE BIOSCIENCES INC.-2019NBI00314

PATIENT
  Sex: Female

DRUGS (6)
  1. CHLORPROMAZINE. [Concomitant]
     Active Substance: CHLORPROMAZINE
     Indication: HALLUCINATION, AUDITORY
     Dosage: TAKE 3 TABLETS BY MOUTH TWO TIMES A DAY WITH MEALS, AT BREAKFAST AND LUNCH, AND 6 TABLETS AT BEDTIME
  2. LORAZEPAM. [Concomitant]
     Active Substance: LORAZEPAM
     Indication: ANXIETY
     Dosage: EVERY MORNING AND AT 1 PM
  3. AMLODIPINE BESYLATE. [Concomitant]
     Active Substance: AMLODIPINE BESYLATE
  4. CEPHALEXIN. [Concomitant]
     Active Substance: CEPHALEXIN
  5. TRAZODONE [Concomitant]
     Active Substance: TRAZODONE HYDROCHLORIDE
  6. INGREZZA [Suspect]
     Active Substance: VALBENAZINE
     Indication: TARDIVE DYSKINESIA
     Route: 048
     Dates: start: 20180531, end: 2018

REACTIONS (2)
  - Agitation [Unknown]
  - Hallucination, auditory [Unknown]
